FAERS Safety Report 6305861-7 (Version None)
Quarter: 2009Q3

REPORT INFORMATION
  Report Type: 
  Country: None (occurrence: None)
  Receive Date: 20090803
  Receipt Date: 20090420
  Transmission Date: 20100115
  Serious: Yes (Hospitalization, Other)
  Sender: FDA-Public Use
  Company Number: 190663USA

PATIENT
  Age: 16 Year
  Sex: Male
  Weight: 61.7 kg

DRUGS (10)
  1. IFOSFAMIDE [Suspect]
     Indication: BONE SARCOMA
     Dosage: 3GM/60ML EVERY 20 HOURS (3260 MG),PARENTERAL
     Route: 051
     Dates: start: 20090402, end: 20090406
  2. IFOSFAMIDE [Suspect]
  3. ACTIVASE [Concomitant]
  4. AMITRIPTYLINE [Concomitant]
  5. DEXAMETHASONE [Concomitant]
  6. ENOXAPARIN SODIUM [Concomitant]
  7. FLUCONAZOLE [Concomitant]
  8. GABAPENTIN [Concomitant]
  9. GRANISETROP [Concomitant]
  10. BACTRIM [Concomitant]

REACTIONS (5)
  - DYSKINESIA [None]
  - NERVOUSNESS [None]
  - NEUROTOXICITY [None]
  - SOMNOLENCE [None]
  - TREMOR [None]
